FAERS Safety Report 9744362 (Version 1)
Quarter: 2013Q4

REPORT INFORMATION
  Report Type: Spontaneous
  Country: US (occurrence: US)
  Receive Date: 20131210
  Receipt Date: 20131210
  Transmission Date: 20140711
  Serious: Yes (Hospitalization)
  Sender: FDA-Public Use
  Company Number: US-MYLANLABS-2013S1027144

PATIENT
  Age: 35 Year
  Sex: Male

DRUGS (8)
  1. FENTANYL [Suspect]
     Indication: HEADACHE
     Dosage: LOLLIPOPS
     Route: 065
  2. FENTANYL [Suspect]
     Indication: HEADACHE
     Route: 062
  3. HYDROCODONE [Suspect]
     Indication: HEADACHE
     Route: 065
  4. TRIAMTERENE [Concomitant]
     Route: 065
  5. FLUOXETINE [Concomitant]
     Route: 065
  6. VENLAFAXINE [Concomitant]
     Route: 065
  7. RAMELTEON [Concomitant]
     Route: 065
  8. TEMAZEPAM [Concomitant]
     Route: 065

REACTIONS (1)
  - Sleep apnoea syndrome [Recovering/Resolving]
